FAERS Safety Report 9244041 (Version 1)
Quarter: 2013Q1

REPORT INFORMATION
  Report Type: Spontaneous
  Country: US (occurrence: None)
  Receive Date: 20121123
  Receipt Date: 20121123
  Transmission Date: 20140127
  Serious: No
  Sender: FDA-Public Use
  Company Number: 362611

PATIENT
  Age: 61 Year
  Sex: Male

DRUGS (3)
  1. VICTOZA [Suspect]
     Indication: TYPE 2 DIABETES MELLITUS
     Route: 058
     Dates: start: 20120911
  2. HUMALOG ( INSULIN LISPRO) [Concomitant]
  3. LANTUS ( INSULIN GLARGINE) [Concomitant]

REACTIONS (1)
  - Back pain [None]
